FAERS Safety Report 24278108 (Version 1)
Quarter: 2024Q3

REPORT INFORMATION
  Report Type: Spontaneous
  Country: CN (occurrence: CN)
  Receive Date: 20240903
  Receipt Date: 20240903
  Transmission Date: 20241017
  Serious: Yes (Other)
  Sender: ELI LILLY AND CO
  Company Number: CN-Merck Healthcare KGaA-2024045465

PATIENT
  Age: 68 Year
  Sex: Male
  Weight: 54 kg

DRUGS (4)
  1. ERBITUX [Suspect]
     Active Substance: CETUXIMAB
     Indication: Carcinoid tumour in the large intestine
     Dosage: 775 MG, UNK
     Route: 041
  2. IRINOTECAN HYDROCHLORIDE [Suspect]
     Active Substance: IRINOTECAN HYDROCHLORIDE
     Indication: Carcinoid tumour in the large intestine
     Dosage: 280 MG, DAILY
     Route: 041
     Dates: start: 20240731, end: 20240731
  3. FLUOROURACIL [Suspect]
     Active Substance: FLUOROURACIL
     Indication: Carcinoid tumour in the large intestine
     Dosage: 4370 MG, DAILY
     Route: 050
     Dates: start: 20240731, end: 20240801
  4. LEVOLEUCOVORIN CALCIUM [Concomitant]
     Active Substance: LEVOLEUCOVORIN CALCIUM
     Indication: Carcinoid tumour in the large intestine
     Dosage: 312 MG, DAILY
     Route: 041

REACTIONS (1)
  - Myelosuppression [Recovering/Resolving]

NARRATIVE: CASE EVENT DATE: 20240814
